FAERS Safety Report 16903521 (Version 1)
Quarter: 2019Q4

REPORT INFORMATION
  Report Type: Spontaneous
  Country: US (occurrence: US)
  Receive Date: 20191010
  Receipt Date: 20191010
  Transmission Date: 20200122
  Serious: No
  Sender: FDA-Public Use
  Company Number: US-PFIZER INC-2019435594

PATIENT
  Age: 41 Year
  Sex: Male

DRUGS (1)
  1. ADVIL LIQUI-GELS [Suspect]
     Active Substance: IBUPROFEN
     Indication: BACK PAIN
     Dosage: UNK
     Dates: start: 20191007

REACTIONS (5)
  - Oral discomfort [Unknown]
  - Paraesthesia oral [Unknown]
  - Intentional product misuse [Unknown]
  - Product use complaint [Unknown]
  - Throat irritation [Unknown]

NARRATIVE: CASE EVENT DATE: 20191007
